FAERS Safety Report 19261278 (Version 1)
Quarter: 2021Q2

REPORT INFORMATION
  Report Type: Report from Study
  Country: US (occurrence: US)
  Receive Date: 20210515
  Receipt Date: 20210515
  Transmission Date: 20210717
  Serious: Yes (Hospitalization, Other)
  Sender: FDA-Public Use
  Company Number: US-SHIRE-US202017558

PATIENT
  Sex: Female

DRUGS (1)
  1. CUVITRU [Suspect]
     Active Substance: HUMAN IMMUNOGLOBULIN G
     Indication: PRIMARY IMMUNODEFICIENCY SYNDROME
     Route: 065

REACTIONS (12)
  - Diabetes mellitus [Unknown]
  - Blood glucose fluctuation [Unknown]
  - Pruritus [Unknown]
  - Infection [Unknown]
  - Pyrexia [Unknown]
  - Chills [Unknown]
  - Sepsis [Unknown]
  - Ingrowing nail [Unknown]
  - Gait inability [Unknown]
  - Inappropriate schedule of product administration [Unknown]
  - Dyspnoea [Unknown]
  - Blood pressure increased [Unknown]
